FAERS Safety Report 10066295 (Version 1)
Quarter: 2014Q2

REPORT INFORMATION
  Report Type: Spontaneous
  Country: US (occurrence: None)
  Receive Date: 20140401
  Receipt Date: 20140401
  Transmission Date: 20141212
  Serious: Yes (Other)
  Sender: FDA-Public Use
  Company Number: PHEH2013US020922

PATIENT
  Age: 71 Year
  Sex: Female

DRUGS (8)
  1. TASIGNA [Suspect]
     Route: 048
     Dates: start: 20130930, end: 20131004
  2. XANAX (ALPRAZOLAM) [Concomitant]
  3. CLONIDINE [Concomitant]
  4. GABAPENTIN [Concomitant]
  5. LANTUS (INSULIN GLARGINE) [Concomitant]
  6. NOVOLOG (INSULIN ASPART) [Concomitant]
  7. OXYCODONE [Concomitant]
  8. ZETIA (EZETIMIBE) [Concomitant]

REACTIONS (17)
  - Sinusitis [None]
  - Throat tightness [None]
  - Rhinorrhoea [None]
  - Mental impairment [None]
  - Malaise [None]
  - Oropharyngeal pain [None]
  - Rash [None]
  - Headache [None]
  - Pruritus generalised [None]
  - Fatigue [None]
  - Abdominal pain [None]
  - Myalgia [None]
  - Arthralgia [None]
  - Muscle spasms [None]
  - Asthenia [None]
  - Cough [None]
  - Blood glucose increased [None]
